FAERS Safety Report 6203007-7 (Version None)
Quarter: 2009Q2

REPORT INFORMATION
  Report Type: 
  Country: None (occurrence: None)
  Receive Date: 20090521
  Receipt Date: 20080807
  Transmission Date: 20091009
  Serious: Yes (Other)
  Sender: FDA-Public Use
  Company Number: 19934

PATIENT
  Age: 48 Year
  Sex: Female

DRUGS (2)
  1. PACLITAXEL [Suspect]
     Indication: OVARIAN CANCER
  2. TOPOTECAN [Suspect]
     Indication: OVARIAN CANCER

REACTIONS (2)
  - CENTRAL NERVOUS SYSTEM LESION [None]
  - NEUROLOGICAL SYMPTOM [None]
